FAERS Safety Report 24554161 (Version 1)
Quarter: 2024Q4

REPORT INFORMATION
  Report Type: Spontaneous
  Country: GB (occurrence: GB)
  Receive Date: 20241028
  Receipt Date: 20241028
  Transmission Date: 20250115
  Serious: Yes (Congenital Anomaly, Other)
  Sender: TEVA
  Company Number: GB-MHRA-EMIS-3907-6c74f8f8-797e-41b0-bf00-8a3f7f44abdb

PATIENT
  Age: 75 Year
  Sex: Female
  Weight: 78 kg

DRUGS (1)
  1. ATORVASTATIN [Suspect]
     Active Substance: ATORVASTATIN
     Dosage: AT BEDTIME; DAILY DOSE: 1 DOSAGE FORM
     Route: 065
     Dates: start: 20240925, end: 20241018

REACTIONS (1)
  - Hallucination [Recovered/Resolved]
